FAERS Safety Report 23757233 (Version 2)
Quarter: 2024Q2

REPORT INFORMATION
  Report Type: Report from Study
  Country: US (occurrence: US)
  Receive Date: 20240418
  Receipt Date: 20240502
  Transmission Date: 20240716
  Serious: No
  Sender: FDA-Public Use
  Company Number: US-AstraZeneca-CH-00604476A

PATIENT
  Age: 54 Year
  Sex: Female
  Weight: 63.492 kg

DRUGS (1)
  1. STRENSIQ [Suspect]
     Active Substance: ASFOTASE ALFA
     Indication: Product used for unknown indication
     Dosage: 40 MILLIGRAM, TIW
     Route: 058
     Dates: start: 20240201

REACTIONS (6)
  - Injection site pain [Unknown]
  - Arthritis [Not Recovered/Not Resolved]
  - Oropharyngeal pain [Unknown]
  - Sinusitis [Unknown]
  - Hot flush [Unknown]
  - Poor quality sleep [Unknown]

NARRATIVE: CASE EVENT DATE: 20240322
